FAERS Safety Report 4834706-7 (Version None)
Quarter: 2005Q4

REPORT INFORMATION
  Report Type: 
  Country: None (occurrence: None)
  Receive Date: 20051122
  Receipt Date: 20051118
  Transmission Date: 20060501
  Serious: Yes (Other)
  Sender: FDA-Public Use
  Company Number: 001#1#2005-00299

PATIENT
  Age: 11 Year
  Sex: Female

DRUGS (1)
  1. ATMADISC MITE [Suspect]
     Dosage: 150UG UNKNOWN
     Route: 055

REACTIONS (2)
  - SCOTOMA [None]
  - VISUAL DISTURBANCE [None]
